FAERS Safety Report 16931354 (Version 4)
Quarter: 2020Q1

REPORT INFORMATION
  Report Type: Report from Study
  Country: FR (occurrence: FR)
  Receive Date: 20191017
  Receipt Date: 20200317
  Transmission Date: 20200409
  Serious: Yes (Hospitalization, Other)
  Sender: FDA-Public Use
  Company Number: FR-BRISTOL-MYERS SQUIBB COMPANY-BMS-2019-097054

PATIENT
  Age: 49 Year
  Sex: Male

DRUGS (1)
  1. NIVOLUMAB [Suspect]
     Active Substance: NIVOLUMAB
     Indication: LUNG NEOPLASM MALIGNANT
     Dosage: 240 MILLIGRAM, Q2WK
     Route: 042
     Dates: start: 20170911, end: 20190520

REACTIONS (3)
  - Motor dysfunction [Unknown]
  - Spinal cord compression [Recovered/Resolved with Sequelae]
  - Haematoma [Unknown]

NARRATIVE: CASE EVENT DATE: 20190627
